FAERS Safety Report 8198875-6 (Version None)
Quarter: 2012Q1

REPORT INFORMATION
  Report Type: 
  Country: None (occurrence: None)
  Receive Date: 20120309
  Receipt Date: 20120222
  Transmission Date: 20120608
  Serious: No
  Sender: FDA-Public Use
  Company Number: US-AMGEN-USASP2011067122

PATIENT
  Age: 73 Year
  Sex: Female

DRUGS (1)
  1. PROLIA [Suspect]
     Indication: OSTEOPOROSIS POSTMENOPAUSAL
     Dosage: 60 MG, Q6MO
     Dates: start: 20110601

REACTIONS (6)
  - BLISTER [None]
  - BLOOD URINE PRESENT [None]
  - BACTERIAL INFECTION [None]
  - DERMATITIS [None]
  - NECK PAIN [None]
  - FUNGAL INFECTION [None]
